FAERS Safety Report 12059616 (Version 2)
Quarter: 2016Q1

REPORT INFORMATION
  Report Type: Report from Study
  Country: CA (occurrence: CA)
  Receive Date: 20160210
  Receipt Date: 20160229
  Transmission Date: 20160526
  Serious: Yes (Hospitalization, Disabling)
  Sender: FDA-Public Use
  Company Number: CA-BEH-2016058594

PATIENT
  Age: 70 Year
  Sex: Male
  Weight: 76.2 kg

DRUGS (1)
  1. HIZENTRA [Suspect]
     Active Substance: HUMAN IMMUNOGLOBULIN G
     Indication: SECONDARY IMMUNODEFICIENCY
     Dosage: PUSH METHOD. ONE DOSE
     Route: 058
     Dates: start: 20160121

REACTIONS (2)
  - Ill-defined disorder [Unknown]
  - Akinesia [Unknown]

NARRATIVE: CASE EVENT DATE: 20160126
